FAERS Safety Report 5315644-2 (Version None)
Quarter: 2007Q2

REPORT INFORMATION
  Report Type: 
  Country: None (occurrence: None)
  Receive Date: 20070430
  Receipt Date: 20070430
  Transmission Date: 20071010
  Serious: Yes (Hospitalization)
  Sender: FDA-Public Use
  Company Number: None

PATIENT
  Sex: Male
  Weight: 99.8 kg

DRUGS (7)
  1. CAMPATH [Suspect]
     Dosage: 1483 MG
  2. BACTRIM DS [Concomitant]
  3. DIFLUCAN [Concomitant]
  4. MULTI-VITAMIN [Concomitant]
  5. PRILOSEC [Concomitant]
  6. ACYCLOVIR [Concomitant]
  7. NEULASTA [Concomitant]

REACTIONS (2)
  - FEBRILE NEUTROPENIA [None]
  - PANCYTOPENIA [None]
